FAERS Safety Report 6166244-6 (Version None)
Quarter: 2009Q2

REPORT INFORMATION
  Report Type: 
  Country: None (occurrence: None)
  Receive Date: 20090424
  Receipt Date: 20090420
  Transmission Date: 20091009
  Serious: Yes (Death, Hospitalization, Disabling, Other)
  Sender: FDA-Public Use
  Company Number: PHHY2009BR15074

PATIENT
  Sex: Female

DRUGS (5)
  1. DIOVAN [Suspect]
     Indication: HYPERTENSION
     Dosage: 1DF IN THE MORNING
     Route: 048
     Dates: start: 20080101
  2. TICLID [Concomitant]
     Dosage: UNK
     Route: 048
     Dates: start: 20010101
  3. AMLODIPINE BESYLATE [Concomitant]
     Indication: HYPERTENSION
     Dosage: 5 MG
     Route: 048
     Dates: start: 20010101
  4. OSCAL [Concomitant]
     Dosage: UNK
     Route: 048
     Dates: start: 20060101
  5. PROPAN GEL-S [Concomitant]
     Dosage: UNK
     Route: 048
     Dates: start: 20080101

REACTIONS (9)
  - BLOOD GLUCOSE INCREASED [None]
  - DEATH [None]
  - FALL [None]
  - GENERAL PHYSICAL HEALTH DETERIORATION [None]
  - MALIGNANT NEOPLASM PROGRESSION [None]
  - OEDEMA [None]
  - PNEUMONIA [None]
  - VERTEBRAL INJURY [None]
  - WHEELCHAIR USER [None]
